FAERS Safety Report 7548769-1 (Version None)
Quarter: 2011Q2

REPORT INFORMATION
  Report Type: 
  Country: None (occurrence: None)
  Receive Date: 20110615
  Receipt Date: 20110613
  Transmission Date: 20111010
  Serious: Yes (Other)
  Sender: FDA-Public Use
  Company Number: IT-PFIZER INC-2011128646

PATIENT
  Age: 57 Year
  Sex: Female

DRUGS (4)
  1. CORTISONE [Suspect]
     Dosage: 4 MG, UNK
  2. ENBREL [Suspect]
     Dosage: 50 MG, WEEKLY
  3. METHOTREXATE [Suspect]
     Dosage: UNK
  4. CELEBREX [Suspect]
     Dosage: UNK

REACTIONS (1)
  - HELICOBACTER INFECTION [None]
